FAERS Safety Report 7702918-0 (Version None)
Quarter: 2011Q3

REPORT INFORMATION
  Report Type: 
  Country: None (occurrence: None)
  Receive Date: 20110823
  Receipt Date: 20110812
  Transmission Date: 20111222
  Serious: Yes (Other)
  Sender: FDA-Public Use
  Company Number: DE-JNJFOC-20110706621

PATIENT
  Sex: Female

DRUGS (4)
  1. MINOXIDIL [Suspect]
     Route: 061
     Dates: start: 20110608, end: 20110701
  2. MINOXIDIL [Suspect]
     Route: 061
     Dates: start: 20110101
  3. MINOXIDIL [Suspect]
     Indication: PRODUCT USED FOR UNKNOWN INDICATION
     Route: 061
     Dates: start: 20110101
  4. MINOXIDIL [Suspect]
     Route: 061
     Dates: start: 20110608, end: 20110701

REACTIONS (1)
  - HERPES VIRUS INFECTION [None]
